FAERS Safety Report 7603307-X (Version None)
Quarter: 2011Q3

REPORT INFORMATION
  Report Type: 
  Country: None (occurrence: None)
  Receive Date: 20110712
  Receipt Date: 20110629
  Transmission Date: 20111222
  Serious: Yes (Hospitalization, Other)
  Sender: FDA-Public Use
  Company Number: PHHY2011AU53343

PATIENT
  Sex: Male

DRUGS (4)
  1. VITAMIN D [Concomitant]
     Indication: VITAMIN D
     Dosage: 25 UG, UNK
     Route: 048
  2. ASPIRIN [Concomitant]
     Indication: CEREBROVASCULAR ACCIDENT
     Dosage: 100 MG, UNK
     Route: 048
     Dates: start: 20110601
  3. CLOZAPINE [Suspect]
     Dosage: 300 MG, UNK
     Route: 048
     Dates: start: 20040807
  4. VALPROATE SODIUM [Concomitant]
     Indication: AFFECTIVE DISORDER
     Dosage: 1 G, BID

REACTIONS (5)
  - VITAMIN D DECREASED [None]
  - ANTIPSYCHOTIC DRUG LEVEL BELOW THERAPEUTIC [None]
  - THOUGHT BLOCKING [None]
  - AFFECTIVE DISORDER [None]
  - APHASIA [None]
